FAERS Safety Report 7814066-X (Version None)
Quarter: 2011Q4

REPORT INFORMATION
  Report Type: 
  Country: None (occurrence: None)
  Receive Date: 20111014
  Receipt Date: 20111004
  Transmission Date: 20120403
  Serious: Yes (Death, Other)
  Sender: FDA-Public Use
  Company Number: US-JNJFOC-20090205483

PATIENT
  Sex: Male

DRUGS (4)
  1. AZATHIOPRINE [Concomitant]
     Dates: start: 20080101
  2. REMICADE [Suspect]
     Indication: COLITIS ULCERATIVE
     Dosage: 2 DOSES ON UNSPECIFIED DATES
     Route: 042
     Dates: end: 20030101
  3. PULSE STEROIDS [Concomitant]
  4. ASACOL [Concomitant]

REACTIONS (1)
  - HEPATOSPLENIC T-CELL LYMPHOMA [None]
